FAERS Safety Report 5710876-3 (Version None)
Quarter: 2008Q2

REPORT INFORMATION
  Report Type: 
  Country: None (occurrence: None)
  Receive Date: 20080421
  Receipt Date: 20080410
  Transmission Date: 20081010
  Serious: Yes (Disabling)
  Sender: FDA-Public Use
  Company Number: PHHY2008GB05468

PATIENT
  Age: 71 Year
  Sex: Male

DRUGS (4)
  1. RIVASTIGMINE TARTRATE [Suspect]
     Indication: DEMENTIA
     Dosage: 1.5MG
     Route: 048
     Dates: start: 20080307, end: 20080318
  2. CO-CARELDOPA [Concomitant]
     Dates: start: 20050822
  3. ENTACAPONE [Concomitant]
     Indication: PARKINSON'S DISEASE
     Dosage: 200MG
     Route: 048
     Dates: start: 20000307
  4. SINEMET [Concomitant]
     Route: 048
     Dates: start: 20050822

REACTIONS (4)
  - ASTHENIA [None]
  - ASTHENOPIA [None]
  - CONFUSIONAL STATE [None]
  - MOBILITY DECREASED [None]
